FAERS Safety Report 8589235-4 (Version None)
Quarter: 2012Q3

REPORT INFORMATION
  Report Type: 
  Country: None (occurrence: None)
  Receive Date: 20120813
  Receipt Date: 20120801
  Transmission Date: 20120928
  Serious: No
  Sender: FDA-Public Use
  Company Number: US-ASTRAZENECA-2012SE54867

PATIENT
  Age: 58 Year
  Sex: Female

DRUGS (2)
  1. ACCOLATE [Suspect]
     Route: 048
  2. ACCOLATE [Suspect]
     Route: 048

REACTIONS (2)
  - INSOMNIA [None]
  - INTENTIONAL DRUG MISUSE [None]
